FAERS Safety Report 8128433-0 (Version None)
Quarter: 2012Q1

REPORT INFORMATION
  Report Type: 
  Country: None (occurrence: None)
  Receive Date: 20120210
  Receipt Date: 20120131
  Transmission Date: 20120608
  Serious: Yes (Other)
  Sender: FDA-Public Use
  Company Number: JP-ROCHE-1033050

PATIENT
  Sex: Male
  Weight: 48 kg

DRUGS (20)
  1. NORVASC [Concomitant]
     Route: 048
     Dates: start: 20060404
  2. PROMETHAZINE HCL [Concomitant]
     Route: 048
     Dates: start: 20111031
  3. MYONAL [Concomitant]
     Route: 048
     Dates: start: 20060705, end: 20120112
  4. LACTEC [Concomitant]
     Route: 042
     Dates: start: 20120113
  5. ROHYPNOL [Concomitant]
     Route: 048
     Dates: start: 20050920, end: 20120116
  6. TAMIFLU [Suspect]
     Indication: INFLUENZA
     Route: 048
     Dates: start: 20120112, end: 20120113
  7. TAMIFLU [Suspect]
     Route: 048
     Dates: start: 20120116, end: 20120116
  8. PURSENNID [Concomitant]
     Route: 048
     Dates: start: 20050920
  9. TAMIFLU [Suspect]
     Route: 048
     Dates: start: 20120113, end: 20120115
  10. GASMOTIN [Concomitant]
     Route: 048
     Dates: start: 20071004
  11. MUCOSIL-10 [Concomitant]
     Route: 048
     Dates: start: 20120112, end: 20120116
  12. ROCEPHIN [Concomitant]
     Route: 041
     Dates: start: 20120114, end: 20120117
  13. GOODMIN [Concomitant]
     Route: 048
     Dates: start: 20061025
  14. ASPIRIN [Concomitant]
     Route: 048
     Dates: start: 20060404
  15. DANTRIUM [Concomitant]
     Route: 042
     Dates: start: 20120114
  16. FAMOTIDINE [Concomitant]
     Route: 048
     Dates: start: 20060705
  17. ALLOPURINOL [Concomitant]
     Route: 048
     Dates: start: 20050920
  18. ACETAMINOPHEN [Concomitant]
     Route: 054
     Dates: start: 20120111
  19. ACETAMINOPHEN [Concomitant]
     Route: 048
     Dates: start: 20120112
  20. DANTRIUM [Concomitant]
     Route: 048
     Dates: start: 20120113, end: 20120123

REACTIONS (1)
  - NEUROLEPTIC MALIGNANT SYNDROME [None]
